FAERS Safety Report 4660615-2 (Version None)
Quarter: 2005Q2

REPORT INFORMATION
  Report Type: 
  Country: None (occurrence: None)
  Receive Date: 20050425
  Receipt Date: 20050105
  Transmission Date: 20051028
  Serious: No
  Sender: FDA-Public Use
  Company Number: US093201

PATIENT
  Age: 27 Year
  Sex: Female
  Weight: 61 kg

DRUGS (7)
  1. SENSIPAR [Suspect]
     Indication: HYPERPARATHYROIDISM SECONDARY
     Dosage: 30 MG, 1 IN 1 DAYS, PO
     Route: 048
     Dates: start: 20040920, end: 20040923
  2. EPOGEN [Concomitant]
  3. PARACALCITOL [Concomitant]
  4. SEVELAMER HCL [Concomitant]
  5. AMLODIPINE BESYLATE [Concomitant]
  6. MINOXIDIL [Concomitant]
  7. ACCUPRIL [Concomitant]

REACTIONS (2)
  - FEELING ABNORMAL [None]
  - HEART RATE DECREASED [None]
